FAERS Safety Report 7948942-4 (Version None)
Quarter: 2011Q4

REPORT INFORMATION
  Report Type: 
  Country: None (occurrence: None)
  Receive Date: 20111130
  Receipt Date: 20101105
  Transmission Date: 20120403
  Serious: Yes (Other)
  Sender: FDA-Public Use
  Company Number: NL-TEVA-310995ISR

PATIENT
  Sex: Male
  Weight: 93 kg

DRUGS (3)
  1. CALCIUM [Concomitant]
     Dosage: 1000 MILLIGRAM;
     Route: 048
     Dates: start: 20100930
  2. VERAPAMIL HCL [Suspect]
     Dosage: 80 MILLIGRAM;
     Route: 048
     Dates: start: 20100521
  3. VITAMIN D [Concomitant]
     Dosage: 800 IU (INTERNATIONAL UNIT);
     Route: 048

REACTIONS (1)
  - ARRHYTHMIA [None]
